FAERS Safety Report 5273025-4 (Version None)
Quarter: 2007Q1

REPORT INFORMATION
  Report Type: 
  Country: None (occurrence: None)
  Receive Date: 20070322
  Receipt Date: 20061117
  Transmission Date: 20070707
  Serious: Yes (Hospitalization, Other)
  Sender: FDA-Public Use
  Company Number: US-PFIZER INC-2006030582

PATIENT
  Sex: Female
  Weight: 66.7 kg

DRUGS (1)
  1. BEXTRA [Suspect]
     Indication: PAIN IN EXTREMITY
     Dates: start: 20030303, end: 20030311

REACTIONS (1)
  - STEVENS-JOHNSON SYNDROME [None]
